FAERS Safety Report 21129405 (Version 1)
Quarter: 2022Q3

REPORT INFORMATION
  Report Type: Spontaneous
  Country: US (occurrence: US)
  Receive Date: 20220725
  Receipt Date: 20220725
  Transmission Date: 20221026
  Serious: No
  Sender: FDA-Public Use
  Company Number: US-BRISTOL-MYERS SQUIBB COMPANY-2022-079354

PATIENT
  Age: 77 Year
  Sex: Female
  Weight: 58.97 kg

DRUGS (1)
  1. ELIQUIS [Suspect]
     Active Substance: APIXABAN
     Indication: Atrial fibrillation
     Dosage: TWO TIMES A DAY
     Route: 048

REACTIONS (3)
  - Asthenia [Unknown]
  - Diarrhoea [Unknown]
  - Faeces discoloured [Unknown]
